FAERS Safety Report 9742639 (Version 1)
Quarter: 2013Q4

REPORT INFORMATION
  Report Type: Spontaneous
  Country: US (occurrence: US)
  Receive Date: 20131210
  Receipt Date: 20131210
  Transmission Date: 20140711
  Serious: No
  Sender: FDA-Public Use
  Company Number: US-GILEAD-2009-0025225

PATIENT
  Sex: Male

DRUGS (13)
  1. LETAIRIS [Suspect]
     Indication: PULMONARY ARTERIAL HYPERTENSION
     Route: 048
     Dates: start: 20090813
  2. REMODULIN [Concomitant]
  3. WARFARIN [Concomitant]
  4. FUROSEMIDE [Concomitant]
  5. CLONIDINE [Concomitant]
  6. HYDRALAZINE [Concomitant]
  7. AMIODARONE [Concomitant]
  8. CARTIA [Concomitant]
  9. TERAZOSIN [Concomitant]
  10. COLCHICINE [Concomitant]
  11. MIRTAZAPINE [Concomitant]
  12. SIMVASTATIN [Concomitant]
  13. ASPIRIN [Concomitant]

REACTIONS (1)
  - Dyspnoea [Unknown]
